FAERS Safety Report 9515452 (Version 5)
Quarter: 2013Q4

REPORT INFORMATION
  Report Type: Spontaneous
  Country: JP (occurrence: JP)
  Receive Date: 20130911
  Receipt Date: 20131024
  Transmission Date: 20140711
  Serious: Yes (Death, Hospitalization, Other)
  Sender: FDA-Public Use
  Company Number: PHHY2013JP099231

PATIENT
  Age: 92 Year
  Sex: Female
  Weight: 40 kg

DRUGS (11)
  1. EXFORGE [Suspect]
     Dosage: 1 DF, DAILY
     Route: 048
     Dates: start: 20130411, end: 20130905
  2. VOLTAREN SR [Suspect]
     Dosage: UNK UKN, UNK
     Route: 048
     Dates: start: 20130509, end: 20130802
  3. VOLTAREN SR [Suspect]
     Dosage: UNK UKN, UNK
     Route: 048
     Dates: start: 20130830
  4. DONEPEZIL HYDROCHLORIDE [Concomitant]
     Dosage: 1 DF, QD
     Route: 048
     Dates: start: 20130411, end: 20130905
  5. MAGLAX [Concomitant]
     Dosage: UNK UKN, UNK
     Route: 048
     Dates: start: 20130411, end: 20130905
  6. ZYRTEC [Concomitant]
     Dosage: UNK UKN, UNK
     Route: 048
     Dates: start: 20130411, end: 20130905
  7. RABEPRAZOLE NA [Concomitant]
     Dosage: UNK UKN, UNK
     Route: 048
     Dates: start: 20130802
  8. RABEPRAZOLE NA [Concomitant]
     Dosage: UNK UKN, UNK
     Route: 048
     Dates: end: 20130802
  9. LANSAP [Concomitant]
     Dosage: UNK UKN, UNK
     Route: 048
     Dates: start: 20130808, end: 20130814
  10. LANSOPRAZOLE [Concomitant]
     Dosage: 1 DF, QD
     Route: 048
     Dates: start: 20130725, end: 20130802
  11. MUCOSTA [Concomitant]
     Dosage: UNK UKN, UNK

REACTIONS (14)
  - Peritonitis [Fatal]
  - Hypoglycaemia [Recovering/Resolving]
  - Altered state of consciousness [Recovering/Resolving]
  - C-reactive protein increased [Unknown]
  - Blood albumin decreased [Unknown]
  - Blood pressure decreased [Unknown]
  - Blood creatinine increased [Unknown]
  - Helicobacter infection [Unknown]
  - Renal disorder [Unknown]
  - Dyspnoea [Unknown]
  - Ascites [Unknown]
  - Abdominal pain [Unknown]
  - Blood urea increased [Unknown]
  - Heart rate decreased [Unknown]
